FAERS Safety Report 10010736 (Version 1)
Quarter: 2014Q1

REPORT INFORMATION
  Report Type: Spontaneous
  Country: US (occurrence: US)
  Receive Date: 20140314
  Receipt Date: 20140314
  Transmission Date: 20141002
  Serious: Yes (Hospitalization, Other)
  Sender: FDA-Public Use
  Company Number: US-JNJFOC-20140308641

PATIENT
  Age: 66 Year
  Sex: Female

DRUGS (1)
  1. RIVAROXABAN [Suspect]
     Indication: ANTICOAGULANT THERAPY
     Route: 048

REACTIONS (5)
  - Pulmonary alveolar haemorrhage [Recovering/Resolving]
  - Acute respiratory failure [Recovering/Resolving]
  - Acute respiratory distress syndrome [Recovering/Resolving]
  - Renal impairment [Unknown]
  - Atrial fibrillation [Unknown]
